FAERS Safety Report 8419079-5 (Version None)
Quarter: 2012Q2

REPORT INFORMATION
  Report Type: 
  Country: None (occurrence: None)
  Receive Date: 20120607
  Receipt Date: 20120605
  Transmission Date: 20120825
  Serious: Yes (Death, Hospitalization, Other)
  Sender: FDA-Public Use
  Company Number: PHHY2011DO86517

PATIENT
  Age: 85 Year
  Sex: Female

DRUGS (4)
  1. BUDESONIDE [Suspect]
     Indication: ASTHMA
     Dosage: UNK UKN, UNK
  2. DIAZEPAN [Concomitant]
     Dosage: 1 DF, QD
  3. FORADIL [Suspect]
     Indication: ASTHMA
     Dosage: UNK UKN, UNK
  4. DIOVAN [Suspect]
     Indication: HYPERTENSION
     Dosage: 0.5 DF (320MG) PER DAY

REACTIONS (5)
  - DEATH [None]
  - WRONG TECHNIQUE IN DRUG USAGE PROCESS [None]
  - RESPIRATORY FAILURE [None]
  - RENAL FAILURE [None]
  - DYSPNOEA [None]
